FAERS Safety Report 4962215-3 (Version None)
Quarter: 2006Q2

REPORT INFORMATION
  Report Type: 
  Country: None (occurrence: None)
  Receive Date: 20060404
  Receipt Date: 20051031
  Transmission Date: 20061013
  Serious: Yes (Hospitalization)
  Sender: FDA-Public Use
  Company Number: US-MERCK-0511USA00312

PATIENT
  Age: 86 Year
  Sex: Female
  Weight: 95 kg

DRUGS (23)
  1. VIOXX [Suspect]
     Indication: OSTEOARTHRITIS
     Route: 048
     Dates: start: 20001108, end: 20031001
  2. VIOXX [Suspect]
     Route: 048
  3. VIOXX [Suspect]
     Indication: PAIN
     Route: 048
     Dates: start: 20001108, end: 20031001
  4. VIOXX [Suspect]
     Route: 048
  5. TYLENOL (CAPLET) [Concomitant]
     Indication: ARTHRITIS
     Route: 065
  6. TYLENOL (CAPLET) [Concomitant]
     Indication: PAIN
     Route: 065
  7. ACETAMINOPHEN AND CODEINE [Concomitant]
     Indication: PAIN
     Route: 065
     Dates: start: 19980901, end: 20031220
  8. ALPRAZOLAM [Concomitant]
     Indication: ANXIETY
     Route: 065
  9. DYNACIRC [Concomitant]
     Indication: CARDIAC DISORDER
     Route: 065
     Dates: start: 20011126, end: 20020519
  10. DYNACIRC [Concomitant]
     Indication: HYPERTENSION
     Route: 065
     Dates: start: 20011126, end: 20020519
  11. [THERAPY UNSPECIFIED] [Concomitant]
     Indication: OEDEMA PERIPHERAL
     Route: 065
     Dates: start: 20030514
  12. POTASSIUM CHLORIDE [Concomitant]
     Indication: HYPOKALAEMIA
     Route: 065
     Dates: start: 19980723, end: 20051225
  13. LASIX [Concomitant]
     Indication: OEDEMA PERIPHERAL
     Route: 065
     Dates: start: 19990526
  14. CALCIUM (UNSPECIFIED) [Concomitant]
     Indication: OSTEOPOROSIS
     Route: 065
  15. BACTROBAN [Concomitant]
     Indication: BACTERIAL INFECTION
     Route: 065
  16. ZITHROMAX [Concomitant]
     Indication: BACTERIAL INFECTION
     Route: 065
  17. RANITIDINE [Concomitant]
     Indication: GASTROOESOPHAGEAL REFLUX DISEASE
     Route: 065
  18. PROMETHAZINE [Concomitant]
     Route: 065
  19. ALBUTEROL [Concomitant]
     Indication: ASTHMA
     Route: 065
  20. LEVAQUIN [Concomitant]
     Indication: BACTERIAL INFECTION
     Route: 065
  21. COZAAR [Concomitant]
     Indication: HYPERTENSION
     Route: 048
     Dates: start: 20030327
  22. FOSAMAX [Concomitant]
     Indication: OSTEOPOROSIS
     Route: 048
  23. HYDROCHLOROTHIAZIDE AND TRIAMTERENE [Concomitant]
     Indication: OEDEMA
     Route: 065
     Dates: start: 20010503

REACTIONS (18)
  - ANXIETY [None]
  - ASTHENIA [None]
  - ASTHMA [None]
  - BACTERIAL INFECTION [None]
  - CARDIAC DISORDER [None]
  - CARDIAC FAILURE CONGESTIVE [None]
  - FUNGAL INFECTION [None]
  - GASTROOESOPHAGEAL REFLUX DISEASE [None]
  - HORMONE LEVEL ABNORMAL [None]
  - HYPERSENSITIVITY [None]
  - HYPERTENSION [None]
  - HYPOKALAEMIA [None]
  - MYOCARDIAL INFARCTION [None]
  - NAUSEA [None]
  - OEDEMA PERIPHERAL [None]
  - OSTEOPOROSIS [None]
  - PULMONARY CONGESTION [None]
  - URINARY TRACT INFECTION [None]
